FAERS Safety Report 25445694 (Version 1)
Quarter: 2025Q2

REPORT INFORMATION
  Report Type: Spontaneous
  Country: US (occurrence: None)
  Receive Date: 20250617
  Receipt Date: 20250617
  Transmission Date: 20250716
  Serious: Yes (Disabling)
  Sender: FDA-CTU
  Company Number: None

PATIENT
  Age: 35 Year
  Sex: Female
  Weight: 81 kg

DRUGS (3)
  1. CIPROFLOXACIN [Suspect]
     Active Substance: CIPROFLOXACIN
     Indication: Urinary tract infection
     Dates: start: 20230921, end: 20231210
  2. OMEPRAZOLE [Concomitant]
     Active Substance: OMEPRAZOLE
  3. VITAMIN D [Concomitant]
     Active Substance: VITAMIN D NOS

REACTIONS (10)
  - Arthralgia [None]
  - Neuralgia [None]
  - Fatigue [None]
  - Headache [None]
  - Mental impairment [None]
  - General physical health deterioration [None]
  - Impaired work ability [None]
  - Nerve injury [None]
  - Joint injury [None]
  - Quality of life decreased [None]

NARRATIVE: CASE EVENT DATE: 20230921
